FAERS Safety Report 11656371 (Version 2)
Quarter: 2016Q1

REPORT INFORMATION
  Report Type: Report from Study
  Country: FR (occurrence: FR)
  Receive Date: 20151023
  Receipt Date: 20160212
  Transmission Date: 20160525
  Serious: Yes (Death, Hospitalization)
  Sender: FDA-Public Use
  Company Number: FR-KADMON PHARMACEUTICALS, LLC-KAD201504-000989

PATIENT
  Age: 76 Year
  Sex: Female

DRUGS (9)
  1. BEDELIX [Concomitant]
  2. DIOSMINE [Concomitant]
     Active Substance: HESPERIDIN
  3. COZAAR [Concomitant]
     Active Substance: LOSARTAN POTASSIUM
  4. METEOSPASMYL [Concomitant]
     Active Substance: ALVERINE CITRATE\DIMETHICONE
  5. VIEKIRAX [Suspect]
     Active Substance: OMBITASVIR\PARITAPREVIR\RITONAVIR
     Indication: CHRONIC HEPATITIS C
     Dosage: TABLET
     Route: 048
     Dates: start: 20150324, end: 20150407
  6. RIBAVIRIN. [Suspect]
     Active Substance: RIBAVIRIN
     Indication: CHRONIC HEPATITIS C
     Dosage: TABLET
     Route: 048
     Dates: start: 20150324, end: 20150407
  7. EXVIERA [Suspect]
     Active Substance: DASABUVIR
     Indication: CHRONIC HEPATITIS C
     Dosage: TABLET
     Route: 048
     Dates: start: 20150324, end: 20150407
  8. DEBRIDAT [Concomitant]
     Active Substance: TRIMEBUTINE MALEATE
  9. CALCIDOSE [Concomitant]
     Active Substance: CALCIUM CARBONATE

REACTIONS (13)
  - Pulmonary oedema [Unknown]
  - Septic shock [Unknown]
  - Anuria [Unknown]
  - Hepatic encephalopathy [Unknown]
  - Acute kidney injury [Unknown]
  - Renal failure [Unknown]
  - Non-24-hour sleep-wake disorder [Unknown]
  - Ascites [Unknown]
  - Cholestasis [Unknown]
  - Peritonitis [Unknown]
  - Acute on chronic liver failure [Fatal]
  - General physical health deterioration [Unknown]
  - Jaundice [Unknown]

NARRATIVE: CASE EVENT DATE: 201504
